FAERS Safety Report 9937004 (Version 1)
Quarter: 2014Q1

REPORT INFORMATION
  Report Type: Spontaneous
  Country: US (occurrence: None)
  Receive Date: 20140116
  Receipt Date: 20140116
  Transmission Date: 20141002
  Serious: Yes (Hospitalization)
  Sender: FDA-Public Use
  Company Number: 2013AP008372

PATIENT
  Age: 30 Year
  Sex: Female

DRUGS (3)
  1. ZIPRASIDONE HYDROCHLORIDE [Suspect]
     Indication: MAJOR DEPRESSION
  2. SERTRALINE HYDROCHLORIDE TABLETS [Suspect]
     Indication: MAJOR DEPRESSION
  3. PAROXETINE [Concomitant]

REACTIONS (1)
  - Serotonin syndrome [None]
